FAERS Safety Report 9224221 (Version 1)
Quarter: 2013Q1

REPORT INFORMATION
  Report Type: Spontaneous
  Country: US (occurrence: None)
  Receive Date: 20120914
  Receipt Date: 20120914
  Transmission Date: 20140127
  Serious: Yes (Other)
  Sender: FDA-Public Use
  Company Number: HPI-P-019579

PATIENT
  Sex: Female

DRUGS (2)
  1. XYREM (500 MILLIGRAM/MILLILITERS, SOLUTION) (SODIUM OXYBATE) [Suspect]
     Indication: CATAPLEXY
     Route: 048
  2. METHLPHENIDATE HYDROCHLORIDE [Concomitant]

REACTIONS (3)
  - Sleep apnoea syndrome [None]
  - Breath sounds abnormal [None]
  - Cough [None]
